FAERS Safety Report 4471743-9 (Version None)
Quarter: 2004Q4

REPORT INFORMATION
  Report Type: 
  Country: None (occurrence: None)
  Receive Date: 20041006
  Receipt Date: 20040928
  Transmission Date: 20050328
  Serious: Yes (Other)
  Sender: FDA-Public Use
  Company Number: 2004232436CA

PATIENT
  Age: 70 Year
  Sex: Female

DRUGS (4)
  1. PROVERA [Suspect]
     Indication: HORMONE REPLACEMENT THERAPY
     Dosage: 5 MG, 10 DAYS/MONTH, ORAL
     Route: 048
     Dates: start: 19920101, end: 20040907
  2. PREMARIN [Suspect]
     Indication: HORMONE REPLACEMENT THERAPY
     Dosage: 0.625 MG, QD, ORAL
     Route: 048
     Dates: start: 19920101, end: 20040907
  3. FOSAMAX [Concomitant]
  4. SYNTHROID [Concomitant]

REACTIONS (4)
  - BARTHOLIN'S CYST [None]
  - ENDOMETRIAL HYPERTROPHY [None]
  - POST PROCEDURAL HAEMORRHAGE [None]
  - UTERINE POLYP [None]
